FAERS Safety Report 7779664-0 (Version None)
Quarter: 2011Q3

REPORT INFORMATION
  Report Type: 
  Country: None (occurrence: None)
  Receive Date: 20110927
  Receipt Date: 20090715
  Transmission Date: 20111222
  Serious: Yes (Death, Other)
  Sender: FDA-Public Use
  Company Number: US-BAYER-200916412NA

PATIENT
  Age: 34 Year
  Sex: Male
  Weight: 158.8 kg

DRUGS (41)
  1. OMNISCAN [Suspect]
     Indication: MAGNETIC RESONANCE CHOLANGIOPANCREATOGRAPHY
     Dosage: 20 ML, ONCE
     Route: 042
     Dates: start: 20060924, end: 20060924
  2. IRON SUPPLEMENT [Concomitant]
  3. HYDRALAZINE HCL [Concomitant]
  4. HUMALOG [Concomitant]
  5. METOCLOPRAMIDE [Concomitant]
  6. BETHANECHOL [Concomitant]
  7. LEVSIN [Concomitant]
  8. MAGNEVIST [Suspect]
     Dates: start: 20060830, end: 20060830
  9. GADOLINIUM IN UNSPECIFIED DRUG [Suspect]
     Indication: COMPUTERISED TOMOGRAM
     Dosage: UNK
     Dates: start: 20051120
  10. METOLAZONE [Concomitant]
  11. LANTUS [Concomitant]
  12. LYRICA [Concomitant]
  13. POTASSIUM CHLORIDE [Concomitant]
  14. REGLAN [Concomitant]
  15. OMNISCAN [Suspect]
     Indication: NUCLEAR MAGNETIC RESONANCE IMAGING
     Dosage: 20 ML, ONCE
     Dates: start: 20060803, end: 20060803
  16. ATACAND HCT [Concomitant]
  17. VASOTEC [Concomitant]
  18. HYZAAR [Concomitant]
  19. METOPROLOL TARTRATE [Concomitant]
  20. PHOSLO [Concomitant]
  21. CLONIDINE [Concomitant]
  22. LISINOPRIL [Concomitant]
  23. HYOSCYAMINE SULFATE [Concomitant]
  24. FERROUS SULFATE TAB [Concomitant]
  25. MAGNEVIST [Suspect]
     Indication: FISTULOGRAM
     Dosage: UNK UNK, ONCE
     Route: 042
     Dates: start: 20060821, end: 20060821
  26. NORVASC [Concomitant]
  27. ENALAPRIL MALEATE [Concomitant]
  28. COZAAR [Concomitant]
  29. MAGNEVIST [Suspect]
     Indication: NUCLEAR MAGNETIC RESONANCE IMAGING
     Dates: start: 20060816, end: 20060816
  30. FUROSEMIDE [Concomitant]
  31. NOVOLOG [Concomitant]
  32. INSULIN HUMAN [Concomitant]
  33. MAGNEVIST [Suspect]
     Indication: PRODUCT USED FOR UNKNOWN INDICATION
     Dosage: 30 ML, UNK
     Route: 042
     Dates: start: 20060306
  34. OMNISCAN [Suspect]
     Indication: PRODUCT USED FOR UNKNOWN INDICATION
     Dates: start: 20060406, end: 20060406
  35. TOPROL-XL [Concomitant]
  36. TERAZOSIN HCL [Concomitant]
  37. SERTRALINE HYDROCHLORIDE [Concomitant]
  38. QUININE SULFATE [Concomitant]
  39. MAGNEVIST [Suspect]
     Dates: start: 20070302, end: 20070302
  40. PROHANCE [Suspect]
     Indication: NUCLEAR MAGNETIC RESONANCE IMAGING
     Dosage: UNK
     Dates: start: 20060920
  41. LACTOBACILLUS ACIDOPHILUS [Concomitant]

REACTIONS (12)
  - ASTHENIA [None]
  - NEPHROGENIC SYSTEMIC FIBROSIS [None]
  - SKIN INDURATION [None]
  - MUSCULOSKELETAL CHEST PAIN [None]
  - ANXIETY [None]
  - TOXICITY TO VARIOUS AGENTS [None]
  - FIBROSIS [None]
  - SKIN HYPERTROPHY [None]
  - MOBILITY DECREASED [None]
  - PULMONARY FIBROSIS [None]
  - PAIN [None]
  - ARTHRALGIA [None]
